FAERS Safety Report 8832234 (Version 1)
Quarter: 2012Q4

REPORT INFORMATION
  Report Type: 
  Country: GB (occurrence: GB)
  Receive Date: 20121009
  Receipt Date: 20121009
  Transmission Date: 20130627
  Serious: Yes (Other)
  Sender: FDA-Public Use
  Company Number: GB-TEVA-361955ISR

PATIENT
  Sex: Male

DRUGS (1)
  1. TAMOXIFEN [Suspect]

REACTIONS (1)
  - Neuropathy peripheral [Unknown]
